FAERS Safety Report 4512835-5 (Version None)
Quarter: 2004Q4

REPORT INFORMATION
  Report Type: 
  Country: None (occurrence: None)
  Receive Date: 20041119
  Receipt Date: 20041119
  Transmission Date: 20050328
  Serious: Yes (Other)
  Sender: FDA-Public Use
  Company Number: None

PATIENT
  Age: 53 Year
  Sex: Female

DRUGS (1)
  1. LEVAQUIN [Suspect]
     Indication: RESPIRATORY TRACT INFECTION
     Dosage: 1 PER DAY
     Dates: start: 20031006, end: 20031015

REACTIONS (3)
  - ARTHRALGIA [None]
  - INSOMNIA [None]
  - MUSCLE CRAMP [None]
